FAERS Safety Report 5945957-2 (Version None)
Quarter: 2008Q4

REPORT INFORMATION
  Report Type: 
  Country: None (occurrence: None)
  Receive Date: 20081110
  Receipt Date: 20081105
  Transmission Date: 20090506
  Serious: Yes (Other)
  Sender: FDA-Public Use
  Company Number: GB-BRISTOL-MYERS SQUIBB COMPANY-14398150

PATIENT
  Age: 57 Year
  Sex: Male

DRUGS (2)
  1. SUSTIVA [Suspect]
  2. KIVEXA [Suspect]

REACTIONS (1)
  - PORTAL VEIN THROMBOSIS [None]
